FAERS Safety Report 4681791-1 (Version None)
Quarter: 2005Q2

REPORT INFORMATION
  Report Type: 
  Country: None (occurrence: None)
  Receive Date: 20050601
  Receipt Date: 20050518
  Transmission Date: 20051028
  Serious: Yes (Other)
  Sender: FDA-Public Use
  Company Number: USA050598440

PATIENT
  Age: 64 Year
  Sex: Female

DRUGS (1)
  1. HUMULIN 70/30 [Suspect]
     Indication: DIABETES MELLITUS
     Dosage: 80 U DAY
     Dates: start: 19900101

REACTIONS (11)
  - ANGINA PECTORIS [None]
  - CARDIOMYOPATHY [None]
  - CATARACT [None]
  - DISEASE RECURRENCE [None]
  - DIZZINESS [None]
  - DRY EYE [None]
  - DYSPNOEA [None]
  - GLAUCOMA [None]
  - PERICARDIAL EFFUSION [None]
  - SOMNOLENCE [None]
  - VISUAL DISTURBANCE [None]
